FAERS Safety Report 11630761 (Version 6)
Quarter: 2016Q1

REPORT INFORMATION
  Report Type: Report from Study
  Country: DE (occurrence: DE)
  Receive Date: 20151014
  Receipt Date: 20160321
  Transmission Date: 20160525
  Serious: Yes (Hospitalization)
  Sender: FDA-Public Use
  Company Number: DE-BAXALTA-2015BLT002167

PATIENT
  Age: 18 Year
  Sex: Male
  Weight: 81 kg

DRUGS (19)
  1. ARCOXIA [Concomitant]
     Active Substance: ETORICOXIB
     Indication: ARTHRITIS
     Dosage: 90 MG, AS NEEDED
     Route: 048
     Dates: start: 20141223
  2. IBUPROFEN AL [Concomitant]
     Active Substance: IBUPROFEN
     Indication: ARTHRITIS
     Dosage: 600 MG, AS NEEDED
     Route: 048
     Dates: start: 20141223
  3. TAZOBAC [Concomitant]
     Active Substance: PIPERACILLIN SODIUM\TAZOBACTAM SODIUM
     Indication: DEVICE RELATED SEPSIS
     Dosage: 4 G, 2X A DAY
     Route: 042
     Dates: start: 20150711, end: 20150720
  4. CLARITHROMYCIN. [Concomitant]
     Active Substance: CLARITHROMYCIN
     Indication: GASTROINTESTINAL HAEMORRHAGE
     Dosage: 250 MG, 2X A DAY
     Route: 048
     Dates: start: 20150609, end: 20150616
  5. FEIBA NF [Suspect]
     Active Substance: ANTI-INHIBITOR COAGULANT COMPLEX
     Indication: HAEMORRHAGE
  6. CEFUROXIM [Concomitant]
     Active Substance: CEFUROXIME
     Indication: DEVICE RELATED INFECTION
     Dosage: UNK UNK, AS NEEDED
     Route: 048
     Dates: start: 20141224
  7. PANTOZOL [Concomitant]
     Active Substance: PANTOPRAZOLE SODIUM
     Indication: HELICOBACTER INFECTION
     Dosage: 40 MG, 2X A DAY
     Route: 048
     Dates: start: 20150209
  8. NEXIUM [Concomitant]
     Active Substance: ESOMEPRAZOLE MAGNESIUM
     Indication: GASTROINTESTINAL HAEMORRHAGE
     Dosage: 40 MG, 2X A DAY
     Route: 048
     Dates: start: 20150609, end: 20150616
  9. COTRIMOXAZOL AL [Concomitant]
     Indication: DEVICE RELATED INFECTION
     Dosage: 960 MG, 2X A DAY
     Route: 048
     Dates: start: 20150720
  10. FEIBA NF [Suspect]
     Active Substance: ANTI-INHIBITOR COAGULANT COMPLEX
     Indication: FACTOR VIII DEFICIENCY
     Dosage: 5000 IU, 1X A DAY
     Route: 042
     Dates: start: 20151006, end: 20151006
  11. ZACPAC [Concomitant]
     Active Substance: AMOXICILLIN\CLARITHROMYCIN\PANTOPRAZOLE
     Indication: HELICOBACTER INFECTION
     Dosage: 40MGPANTOPRAZOLE,1.000MGAM, 500MGCLARITHROMYCIN TABLET
     Route: 048
     Dates: start: 20150212, end: 20150222
  12. ROCEPHIN [Concomitant]
     Active Substance: CEFTRIAXONE SODIUM
     Indication: DEVICE RELATED INFECTION
     Dosage: UNK UNK, AS NEEDED
     Route: 042
     Dates: start: 20141224
  13. ESOMEPRAZOLE [Concomitant]
     Active Substance: ESOMEPRAZOLE
     Indication: GASTROOESOPHAGEAL REFLUX DISEASE
     Dosage: 40 MG, 1X A DAY
     Route: 048
     Dates: start: 20150723
  14. FEIBA NF [Suspect]
     Active Substance: ANTI-INHIBITOR COAGULANT COMPLEX
     Indication: HAEMORRHAGE PROPHYLAXIS
  15. NOVOSEVEN [Concomitant]
     Active Substance: COAGULATION FACTOR VIIA RECOMBINANT HUMAN
     Indication: HAEMORRHAGE
     Dosage: UNK UNK, AS NEEDED
     Route: 042
     Dates: start: 20141223
  16. DICLOFENAC [Concomitant]
     Active Substance: DICLOFENAC
     Indication: ARTHROPATHY
     Dosage: UNK
     Route: 048
     Dates: start: 201505, end: 201506
  17. ARCOXIA [Concomitant]
     Active Substance: ETORICOXIB
     Indication: ARTHROPATHY
     Dosage: 90 MG, 1X A DAY
     Route: 048
     Dates: start: 20160111
  18. METRONIDAZOL [Concomitant]
     Active Substance: METRONIDAZOLE
     Indication: HELICOBACTER INFECTION
     Dosage: 400 MG, 2X A DAY
     Route: 048
     Dates: start: 20150609, end: 20150616
  19. FERRO SANOL DUODENAL [Concomitant]
     Active Substance: FERROUS GLYCINE SULFATE
     Indication: IRON DEFICIENCY
     Dosage: 100 MG, 2X A DAY
     Route: 048
     Dates: start: 20150209

REACTIONS (2)
  - Gastrointestinal haemorrhage [Recovered/Resolved]
  - Device related infection [Recovered/Resolved]

NARRATIVE: CASE EVENT DATE: 20151006
